FAERS Safety Report 24424054 (Version 1)
Quarter: 2024Q4

REPORT INFORMATION
  Report Type: Spontaneous
  Country: PT (occurrence: PT)
  Receive Date: 20241010
  Receipt Date: 20241010
  Transmission Date: 20250115
  Serious: Yes (Other)
  Sender: GLAXOSMITHKLINE
  Company Number: PT-GSK-PT2024EME122201

PATIENT

DRUGS (1)
  1. JEMPERLI [Suspect]
     Active Substance: DOSTARLIMAB\DOSTARLIMAB-GXLY
     Indication: Endometrial cancer
     Dosage: UNK

REACTIONS (4)
  - Ketoacidosis [Unknown]
  - Syncope [Unknown]
  - Toxicity to various agents [Unknown]
  - Fatigue [Unknown]
